FAERS Safety Report 19015162 (Version 2)
Quarter: 2021Q2

REPORT INFORMATION
  Report Type: Spontaneous
  Country: US (occurrence: US)
  Receive Date: 20210317
  Receipt Date: 20210419
  Transmission Date: 20210717
  Serious: No
  Sender: FDA-Public Use
  Company Number: US-BAUSCH-BL-2021-004946

PATIENT
  Sex: Female

DRUGS (1)
  1. MESALAMINE EXTENDED?RELEASE CAPSULES [Suspect]
     Active Substance: MESALAMINE
     Indication: PRODUCT USED FOR UNKNOWN INDICATION
     Dosage: PROBABLE 3 YEARS BACK
     Route: 065
     Dates: start: 2018

REACTIONS (2)
  - Abdominal pain upper [Recovered/Resolved]
  - Product substitution issue [Unknown]
